FAERS Safety Report 9955595 (Version 1)
Quarter: 2014Q1

REPORT INFORMATION
  Report Type: Report from Study
  Country: US (occurrence: US)
  Receive Date: 20140304
  Receipt Date: 20140304
  Transmission Date: 20141002
  Serious: No
  Sender: FDA-Public Use
  Company Number: US-ABBVIE-13P-163-1073467-00

PATIENT
  Age: 59 Year
  Sex: Female
  Weight: 90.8 kg

DRUGS (6)
  1. HUMIRA [Suspect]
     Indication: PSORIASIS
     Dates: start: 201201, end: 201301
  2. LEVOXYL [Concomitant]
     Indication: HYPOTHYROIDISM
  3. ESTRACE [Concomitant]
     Indication: HORMONE REPLACEMENT THERAPY
  4. ESTRACE [Concomitant]
     Indication: EMOTIONAL DISORDER
  5. VECTICAL [Concomitant]
     Indication: PSORIASIS
  6. ELIDEL [Concomitant]
     Indication: PSORIASIS

REACTIONS (5)
  - Swelling face [Not Recovered/Not Resolved]
  - Ocular hyperaemia [Not Recovered/Not Resolved]
  - Pruritus generalised [Not Recovered/Not Resolved]
  - Drug ineffective [Not Recovered/Not Resolved]
  - Psoriasis [Not Recovered/Not Resolved]
